FAERS Safety Report 8619289-8 (Version None)
Quarter: 2012Q3

REPORT INFORMATION
  Report Type: 
  Country: None (occurrence: None)
  Receive Date: 20120824
  Receipt Date: 20120816
  Transmission Date: 20120928
  Serious: Yes (Other)
  Sender: FDA-Public Use
  Company Number: CN-ASTELLAS-2012US007094

PATIENT
  Sex: Female
  Weight: 55 kg

DRUGS (1)
  1. TARCEVA [Suspect]
     Indication: LUNG NEOPLASM MALIGNANT
     Dosage: 1 DF, UID/QD
     Route: 048
     Dates: start: 20080412, end: 20081102

REACTIONS (3)
  - ELECTROCARDIOGRAM ST-T SEGMENT ABNORMAL [None]
  - CHEST DISCOMFORT [None]
  - PALPITATIONS [None]
